FAERS Safety Report 4818763-X (Version None)
Quarter: 2005Q4

REPORT INFORMATION
  Report Type: 
  Country: None (occurrence: None)
  Receive Date: 20051101
  Receipt Date: 20051017
  Transmission Date: 20060501
  Serious: Yes (Hospitalization)
  Sender: FDA-Public Use
  Company Number: 2005002023

PATIENT
  Age: 61 Year
  Sex: Female

DRUGS (1)
  1. TARCEVA [Suspect]
     Indication: LUNG NEOPLASM MALIGNANT
     Dosage: SEE IMAGE
     Route: 048

REACTIONS (4)
  - DEEP VEIN THROMBOSIS [None]
  - DEHYDRATION [None]
  - FATIGUE [None]
  - RASH [None]
